FAERS Safety Report 7068347 (Version 2)
Quarter: 2013Q4

REPORT INFORMATION
  Report Type: Spontaneous
  Country: US (occurrence: None)
  Receive Date: 20090724
  Receipt Date: 20131126
  Transmission Date: 20140711
  Serious: Yes (Other)
  Sender: FDA-Public Use
  Company Number: 2009S1005454

PATIENT
  Age: 58 Year
  Sex: Female
  Weight: 87.09 kg

DRUGS (7)
  1. SODIUM PHOSPHATE, DIBASIC\SODIUM PHOSPHATE, MONOBASIC, ANHYDROUS [Suspect]
     Indication: COLONOSCOPY
     Dosage: 90ML, 2 IN 24 HOURS, ORAL
     Route: 048
     Dates: start: 200602, end: 200602
  2. TRIAMTERENE/HYDROCHLOROTHIAZIDE (HYDROCHLOROTHIAZIDE, TRIAMTERENE) [Concomitant]
  3. LEXAPRO (ESCITALOPRAM OXALATE) [Concomitant]
  4. COREG (CARVEDILOL) [Concomitant]
  5. MIRAPEX (PRAMIPEXOLE DIHYDROCHLORIDE) [Concomitant]
  6. SYNTHROID (LEVOTHYROXINE SODIUM) [Concomitant]
  7. TOPAMAX (TOPIRAMATE) [Concomitant]

REACTIONS (1)
  - Renal failure chronic [None]
